FAERS Safety Report 8654472 (Version 7)
Quarter: 2014Q1

REPORT INFORMATION
  Report Type: Report from Study
  Country: JP (occurrence: JP)
  Receive Date: 20120709
  Receipt Date: 20140117
  Transmission Date: 20141002
  Serious: Yes (Life-Threatening, Hospitalization)
  Sender: FDA-Public Use
  Company Number: JP-MSD JAPAN-1205USA03090

PATIENT
  Age: 49 Year
  Sex: Female

DRUGS (15)
  1. ZOLINZA CAPSULES 100MG [Suspect]
     Indication: MYCOSIS FUNGOIDES
     Dosage: 400 MG, QD
     Route: 048
     Dates: start: 20120403, end: 20120413
  2. ZOLINZA CAPSULES 100MG [Suspect]
     Dosage: 300 MG, QD
     Route: 048
     Dates: start: 20120414, end: 20120420
  3. ZOLINZA CAPSULES 100MG [Suspect]
     Dosage: 300 MG, QD
     Route: 048
     Dates: start: 20120508, end: 20120601
  4. ZOLINZA CAPSULES 100MG [Suspect]
     Dosage: 300 MG, QD
     Route: 048
     Dates: start: 20120608, end: 20120905
  5. ZOLINZA CAPSULES 100MG [Suspect]
     Dosage: 300 MG, QD
     Route: 048
     Dates: start: 20120921, end: 20121214
  6. UNASYN (SULTAMICILLIN TOSYLATE) [Suspect]
     Indication: FEBRILE NEUTROPENIA
     Dosage: 1.5 MG, BID
     Route: 042
     Dates: start: 20120723, end: 20120803
  7. UNASYN (SULTAMICILLIN TOSYLATE) [Suspect]
     Dosage: 1.5 G, BID
     Route: 041
     Dates: start: 20121203, end: 20121212
  8. MAXIPIME [Suspect]
     Indication: FEBRILE NEUTROPENIA
     Dosage: 2 G, QD
     Route: 041
     Dates: start: 20121212, end: 20121214
  9. MEROPEN [Suspect]
     Indication: FEBRILE NEUTROPENIA
     Dosage: 0.5 G, BID
     Route: 041
     Dates: start: 20121215, end: 20121218
  10. GASTER D [Concomitant]
     Indication: PROPHYLAXIS
     Dosage: 20 MG, QD
     Route: 048
  11. CELESTAMINE COMBINATION [Concomitant]
     Indication: MYCOSIS FUNGOIDES
     Dosage: DAILY DOSE UNKNOWN
     Route: 048
  12. CELESTAMINE COMBINATION [Concomitant]
     Dosage: 1 DF, QD
     Route: 048
     Dates: start: 20121111, end: 20121212
  13. CRAVIT [Concomitant]
     Indication: PROPHYLAXIS
     Dosage: 500 MG, QD
     Route: 048
     Dates: start: 20120413, end: 20120416
  14. ROCEPHIN [Concomitant]
     Indication: MYELODYSPLASTIC SYNDROME
     Dosage: 1 G, QD
     Route: 041
     Dates: start: 20120417, end: 20120420
  15. ALLEGRA [Concomitant]
     Indication: MYCOSIS FUNGOIDES
     Dosage: 60 MG, BID
     Route: 048

REACTIONS (7)
  - Blood pressure decreased [Recovered/Resolved]
  - Dehydration [Recovered/Resolved]
  - Diarrhoea [Recovered/Resolved]
  - Hypokalaemia [Recovered/Resolved]
  - Diarrhoea [Not Recovered/Not Resolved]
  - Hypoaesthesia [Recovering/Resolving]
  - Nausea [Not Recovered/Not Resolved]
